FAERS Safety Report 17093222 (Version 1)
Quarter: 2019Q4

REPORT INFORMATION
  Report Type: Spontaneous
  Country: GB (occurrence: GB)
  Receive Date: 20191129
  Receipt Date: 20191129
  Transmission Date: 20200122
  Serious: Yes (Hospitalization)
  Sender: FDA-Public Use
  Company Number: GB-TEVA-2019-GB-1143206

PATIENT
  Age: 45 Week
  Sex: Male

DRUGS (7)
  1. CIPROFLOXACIN. [Suspect]
     Active Substance: CIPROFLOXACIN
     Indication: INFECTED CYST
     Dosage: FOR 10/7 (1000MG PER DAY)
  2. AMLODIPINE [Concomitant]
     Active Substance: AMLODIPINE BESYLATE
     Dosage: 10MG PER DAY
  3. SODIUM HYDROGEN CARBONATE [Concomitant]
     Active Substance: SODIUM BICARBONATE
     Dosage: 1500 MG PER DAY
  4. FOLIC ACID. [Concomitant]
     Active Substance: FOLIC ACID
     Dosage: 5MG PER DAY
  5. DOXAZOSIN [Concomitant]
     Active Substance: DOXAZOSIN MESYLATE
     Dosage: 8MG PER DAY
  6. ENALAPRIL [Concomitant]
     Active Substance: ENALAPRIL
     Dosage: 10MG PER DAY
  7. RENACET [Concomitant]
     Dosage: 2850MG PER DAY
     Route: 048

REACTIONS (5)
  - Dehydration [Unknown]
  - Hypotension [Unknown]
  - Acute kidney injury [Unknown]
  - Vomiting [Unknown]
  - Malaise [Unknown]
